FAERS Safety Report 10294333 (Version 1)
Quarter: 2014Q3

REPORT INFORMATION
  Report Type: Spontaneous
  Country: US (occurrence: US)
  Receive Date: 20140710
  Receipt Date: 20140710
  Transmission Date: 20150326
  Serious: Yes (Other)
  Sender: FDA-Public Use
  Company Number: CHPA2014US009174

PATIENT
  Age: 75 Year
  Sex: Female

DRUGS (1)
  1. PRIVATE LABEL STRENGTH UNKNOWN [Suspect]
     Active Substance: NICOTINE
     Indication: SMOKING CESSATION THERAPY
     Dosage: UNK
     Route: 062

REACTIONS (2)
  - Weight increased [Unknown]
  - Lung infection [Unknown]
